FAERS Safety Report 6470802-9 (Version None)
Quarter: 2009Q4

REPORT INFORMATION
  Report Type: 
  Country: None (occurrence: None)
  Receive Date: 20091203
  Receipt Date: 20090720
  Transmission Date: 20100525
  Serious: No
  Sender: FDA-Public Use
  Company Number: US-ABBOTT-09P-163-0587234-00

PATIENT
  Sex: Female
  Weight: 95.34 kg

DRUGS (11)
  1. MERIDIA [Suspect]
     Indication: WEIGHT CONTROL
     Dates: start: 20050531
  2. MERIDIA [Suspect]
     Dates: start: 20090708, end: 20090715
  3. LOSARTAN [Concomitant]
     Indication: HYPERTENSION
  4. JANUVIA [Concomitant]
     Indication: DIABETES MELLITUS
  5. LASIX [Concomitant]
     Indication: FLUID RETENTION
  6. LEVOTHYROXINE SODIUM [Concomitant]
     Indication: HYPOTHYROIDISM
  7. ESTRACE [Concomitant]
     Indication: MENOPAUSE
     Dosage: .3075 MG PATCH APPLIED WEEKLY
  8. LIPITOR [Concomitant]
     Indication: BLOOD CHOLESTEROL INCREASED
  9. PREVACID FDT [Concomitant]
     Indication: GASTROOESOPHAGEAL REFLUX DISEASE
  10. VICODIN [Concomitant]
     Indication: PAIN
  11. SOMA [Concomitant]
     Indication: MUSCLE RELAXANT THERAPY

REACTIONS (6)
  - ADVERSE DRUG REACTION [None]
  - FEELING JITTERY [None]
  - INSOMNIA [None]
  - MALAISE [None]
  - NAUSEA [None]
  - PALPITATIONS [None]
